FAERS Safety Report 14396898 (Version 1)
Quarter: 2018Q1

REPORT INFORMATION
  Report Type: Spontaneous
  Country: US (occurrence: US)
  Receive Date: 20180116
  Receipt Date: 20180116
  Transmission Date: 20180509
  Serious: No
  Sender: FDA-Public Use
  Company Number: US-ALLERGAN-1751769US

PATIENT
  Sex: Male

DRUGS (5)
  1. BOTOX [Suspect]
     Active Substance: ONABOTULINUMTOXINA
     Indication: TORTICOLLIS
     Dosage: 600 UNITS, SINGLE
     Route: 030
  2. DYSPORT [Concomitant]
     Active Substance: ABOBOTULINUMTOXINA
     Indication: TORTICOLLIS
     Route: 065
  3. XEOMIN [Concomitant]
     Active Substance: INCOBOTULINUMTOXINA
     Indication: TORTICOLLIS
     Route: 065
  4. KLONOPIN [Concomitant]
     Active Substance: CLONAZEPAM
     Indication: TORTICOLLIS
     Route: 065
  5. MYOBLOC [Concomitant]
     Active Substance: RIMABOTULINUMTOXINB
     Indication: TORTICOLLIS
     Dosage: UNK UNK, SINGLE
     Route: 065

REACTIONS (4)
  - Off label use [Unknown]
  - Scar [Unknown]
  - Drug effect decreased [Unknown]
  - Pain [Unknown]
